FAERS Safety Report 25970352 (Version 1)
Quarter: 2025Q4

REPORT INFORMATION
  Report Type: Spontaneous
  Country: EU (occurrence: EU)
  Receive Date: 20251028
  Receipt Date: 20251028
  Transmission Date: 20260118
  Serious: Yes (Other)
  Sender: SANDOZ
  Company Number: EU-SANDOZ-SDZ2025NO079639

PATIENT

DRUGS (1)
  1. AMOXICILLIN [Suspect]
     Active Substance: AMOXICILLIN
     Indication: Ear infection
     Dosage: UNK
     Route: 065
     Dates: start: 20230601, end: 20230607

REACTIONS (6)
  - Peripheral swelling [Unknown]
  - Pain in extremity [Unknown]
  - Joint warmth [Unknown]
  - Arthralgia [Unknown]
  - Gait disturbance [Unknown]
  - Depressed mood [Unknown]

NARRATIVE: CASE EVENT DATE: 20230604
